FAERS Safety Report 10048314 (Version 1)
Quarter: 2014Q1

REPORT INFORMATION
  Report Type: Spontaneous
  Country: US (occurrence: US)
  Receive Date: 20140331
  Receipt Date: 20140331
  Transmission Date: 20141002
  Serious: Yes (Disabling)
  Sender: FDA-Public Use
  Company Number: US-GLAXOSMITHKLINE-A1066516A

PATIENT
  Age: 32 Year
  Sex: Female

DRUGS (8)
  1. VENTOLIN [Suspect]
     Indication: ASTHMA
     Route: 055
  2. SYMBICORT [Concomitant]
  3. MOTRIN [Concomitant]
  4. HYDROCORTISONE SUPPOSITORY [Concomitant]
  5. 7-KETO-DEHYDROEPIANDROSTERONE [Concomitant]
  6. OMEGA 3 FISH OIL [Concomitant]
  7. MULTIVITAMIN [Concomitant]
  8. ECHINACEA [Concomitant]

REACTIONS (2)
  - Dyspnoea [Unknown]
  - Drug ineffective [Unknown]
